FAERS Safety Report 6612657-5 (Version None)
Quarter: 2010Q1

REPORT INFORMATION
  Report Type: 
  Country: None (occurrence: None)
  Receive Date: 20100303
  Receipt Date: 20100218
  Transmission Date: 20100710
  Serious: Yes (Other)
  Sender: FDA-Public Use
  Company Number: CZ-B.I. PHARMACEUTICALS,INC./RIDGEFIELD-2010-DE-01169GD

PATIENT
  Age: 61 Year
  Sex: Male

DRUGS (5)
  1. PRAMIPEXOLE DIHYDROCHLORIDE [Suspect]
     Indication: PARKINSON'S DISEASE
     Dosage: 2.1 MG
     Dates: start: 20060101
  2. AMANTADINE HCL [Suspect]
     Indication: PARKINSON'S DISEASE
     Dosage: 200 MG
     Dates: start: 20020101
  3. LEVODOPA [Concomitant]
     Indication: PARKINSON'S DISEASE
     Dosage: 500 MG
     Dates: start: 20020101
  4. DONEPEZIL HCL [Concomitant]
     Indication: PARKINSON'S DISEASE
     Dosage: 10 MG
     Dates: start: 20020101
  5. DONEPEZIL HCL [Concomitant]
     Indication: COGNITIVE DISORDER

REACTIONS (3)
  - ECONOMIC PROBLEM [None]
  - HYPERSEXUALITY [None]
  - IMPULSE-CONTROL DISORDER [None]
